FAERS Safety Report 20614427 (Version 1)
Quarter: 2022Q1

REPORT INFORMATION
  Report Type: Spontaneous
  Country: JP (occurrence: JP)
  Receive Date: 20220321
  Receipt Date: 20220321
  Transmission Date: 20220423
  Serious: Yes (Other)
  Sender: FDA-Public Use
  Company Number: JP-TAKEDA-2022TJP029064

PATIENT
  Age: 45 Year
  Sex: Female

DRUGS (1)
  1. LEUPLIN [Suspect]
     Active Substance: LEUPROLIDE ACETATE
     Indication: Catamenial pneumothorax
     Dosage: UNK MILLIGRAM, Q6MONTHS?PRO
     Route: 065

REACTIONS (3)
  - Breast cancer [Unknown]
  - Off label use [Unknown]
  - Intermenstrual bleeding [Unknown]
